FAERS Safety Report 20009951 (Version 1)
Quarter: 2021Q4

REPORT INFORMATION
  Report Type: Spontaneous
  Country: US (occurrence: US)
  Receive Date: 20211028
  Receipt Date: 20211028
  Transmission Date: 20220303
  Serious: No
  Sender: FDA-Public Use
  Company Number: US-JNJFOC-20211035026

PATIENT
  Sex: Female

DRUGS (2)
  1. WOMENS ROGAINE UNSCENTED [Suspect]
     Active Substance: MINOXIDIL
     Indication: Alopecia
     Dosage: ON AND OFF?RECOMMENDED DOSING
     Route: 061
     Dates: start: 2021
  2. WOMENS ROGAINE [Suspect]
     Active Substance: MINOXIDIL
     Indication: Alopecia
     Dosage: ON AND OFF
     Route: 061
     Dates: start: 2021

REACTIONS (2)
  - Application site dryness [Unknown]
  - Inappropriate schedule of product administration [Unknown]
